FAERS Safety Report 10856290 (Version 2)
Quarter: 2015Q1

REPORT INFORMATION
  Report Type: Spontaneous
  Country: RS (occurrence: None)
  Receive Date: 20150205
  Receipt Date: 20150219
  Transmission Date: 20150721
  Serious: Yes (Other)
  Sender: FDA-Public Use
  Company Number: LIT-001-15-RS

PATIENT
  Age: 49 Year
  Sex: Female

DRUGS (2)
  1. MYCOPHENOLATE MOFETIL. [Concomitant]
     Active Substance: MYCOPHENOLATE MOFETIL
  2. IG VENA (HUMAN NORMAL IMMUNOGLOBULIN (IV)) [Suspect]
     Active Substance: HUMAN IMMUNOGLOBULIN G
     Indication: IMMUNE THROMBOCYTOPENIC PURPURA
     Dosage: 0.4 MG/KG (1X 1/D), INTRAVENOS (NOT OTHERWISE SPECFIED)
     Route: 042

REACTIONS (5)
  - Thrombosis [None]
  - Acute myocardial infarction [None]
  - Blood viscosity increased [None]
  - Vasospasm [None]
  - Platelet disorder [None]
